FAERS Safety Report 8200379-9 (Version None)
Quarter: 2012Q1

REPORT INFORMATION
  Report Type: 
  Country: None (occurrence: None)
  Receive Date: 20120312
  Receipt Date: 20120302
  Transmission Date: 20120608
  Serious: Yes (Hospitalization)
  Sender: FDA-Public Use
  Company Number: US-US-EMD SERONO, INC.-7116966

PATIENT
  Sex: Female

DRUGS (1)
  1. REBIF [Suspect]
     Indication: PRODUCT USED FOR UNKNOWN INDICATION
     Route: 058
     Dates: start: 20110223

REACTIONS (5)
  - URINARY TRACT INFECTION [None]
  - HYPERTENSION [None]
  - TYPE 1 DIABETES MELLITUS [None]
  - DIABETIC COMA [None]
  - INJECTION SITE INJURY [None]
